FAERS Safety Report 15222304 (Version 3)
Quarter: 2018Q3

REPORT INFORMATION
  Report Type: Report from Study
  Country: RU (occurrence: RU)
  Receive Date: 20180731
  Receipt Date: 20180808
  Transmission Date: 20181010
  Serious: Yes (Hospitalization)
  Sender: FDA-Public Use
  Company Number: RU-ROCHE-2159840

PATIENT
  Age: 64 Year
  Sex: Male
  Weight: 69.8 kg

DRUGS (14)
  1. TOTHEMA [Concomitant]
     Active Substance: COPPER GLUCONATE\FERROUS GLUCONATE\MANGANESE GLUCONATE
     Indication: ANAEMIA
     Dosage: 2 AMPOULE
     Route: 048
     Dates: start: 20180608
  2. HYDROCHLOROTHIAZID [Concomitant]
     Active Substance: HYDROCHLOROTHIAZIDE
     Indication: HYPERTENSION
     Route: 048
  3. CAPTOPRIL. [Concomitant]
     Active Substance: CAPTOPRIL
     Indication: HYPERTENSION
     Route: 048
  4. PENTALGIN (RUSSIA) [Concomitant]
     Indication: PAIN
     Route: 048
  5. ATEZOLIZUMAB. [Suspect]
     Active Substance: ATEZOLIZUMAB
     Indication: TRANSITIONAL CELL CARCINOMA
     Dosage: DATE OF MOST RECENT DOSE OF BLINDED ATEZOLIZUMAB TO AE ONSET 19/JUN/2018
     Route: 042
     Dates: start: 20180411
  6. CARBOPLATIN. [Suspect]
     Active Substance: CARBOPLATIN
     Indication: TRANSITIONAL CELL CARCINOMA
     Dosage: DOSE OF LAST CARBOPLATIN ADMINISTERED 198.4 MG?DATE OF MOST RECENT DOSE OF CARBOPLATIN PRIOR TO AE O
     Route: 042
     Dates: start: 20180412
  7. POLYMETHYLSILOXANE POLYHYDRATE [Concomitant]
     Indication: BLOOD CREATININE INCREASED
     Dosage: 3 TABLESPOON DOSING UNIT
     Route: 048
     Dates: start: 20180503
  8. KETOSTERIL [Concomitant]
     Active Substance: AMINO ACIDS
     Indication: BLOOD CREATININE INCREASED
     Route: 048
     Dates: start: 20180614
  9. VALSARTAN. [Concomitant]
     Active Substance: VALSARTAN
     Indication: HYPERTENSION
     Route: 048
  10. GEMCITABINE [Suspect]
     Active Substance: GEMCITABINE\GEMCITABINE HYDROCHLORIDE
     Indication: TRANSITIONAL CELL CARCINOMA
     Dosage: DOSE OF LAST GEMCITABINE ADMINISTERED 800 MG/M2?DATE OF MOST RECENT DOSE PRIOR TO AE ONSET 31/MAY/20
     Route: 042
     Dates: start: 20180412
  11. TELMISARTAN. [Concomitant]
     Active Substance: TELMISARTAN
     Indication: HYPERTENSION
     Route: 048
  12. ONDANSETRON [Concomitant]
     Active Substance: ONDANSETRON
     Indication: PROPHYLAXIS OF NAUSEA AND VOMITING
     Route: 048
     Dates: start: 20180412, end: 20180718
  13. LECARNIDIPINO [Concomitant]
     Indication: HYPERTENSION
     Route: 048
  14. FILGRASTIM [Concomitant]
     Active Substance: FILGRASTIM
     Indication: NEUTROPHIL COUNT DECREASED
     Route: 058
     Dates: start: 20180419, end: 20180716

REACTIONS (1)
  - Pancytopenia [Recovered/Resolved]

NARRATIVE: CASE EVENT DATE: 20180719
